FAERS Safety Report 22391101 (Version 2)
Quarter: 2023Q2

REPORT INFORMATION
  Report Type: Spontaneous
  Country: FR (occurrence: FR)
  Receive Date: 20230601
  Receipt Date: 20230628
  Transmission Date: 20230722
  Serious: Yes (Other)
  Sender: FDA-Public Use
  Company Number: FR-CELLTRION INC.-2023FR011155

PATIENT

DRUGS (1)
  1. ADALIMUMAB [Suspect]
     Active Substance: ADALIMUMAB
     Indication: Product used for unknown indication
     Dosage: 40 MILLIGRAM, QWK AT M14 (DOSAGE1: UNIT=NOT AVAILABLE)
     Route: 065

REACTIONS (5)
  - Arthralgia [Unknown]
  - C-reactive protein increased [Unknown]
  - Leukocytosis [Unknown]
  - Pharyngitis [Unknown]
  - Drug ineffective [Unknown]
